FAERS Safety Report 5819799-2 (Version None)
Quarter: 2008Q3

REPORT INFORMATION
  Report Type: 
  Country: None (occurrence: None)
  Receive Date: 20080723
  Receipt Date: 20080711
  Transmission Date: 20090109
  Serious: Yes (Other)
  Sender: FDA-Public Use
  Company Number: NL-PFIZER INC-2008059418

PATIENT
  Sex: Female
  Weight: 70 kg

DRUGS (3)
  1. LYRICA [Suspect]
     Indication: NEURALGIA
     Route: 048
  2. HYDROCHLOROTHIAZIDE [Concomitant]
  3. NIFEDIPINE [Concomitant]

REACTIONS (3)
  - INJECTION [None]
  - MONOPLEGIA [None]
  - SPEECH DISORDER [None]
